FAERS Safety Report 8242342-8 (Version None)
Quarter: 2012Q1

REPORT INFORMATION
  Report Type: 
  Country: None (occurrence: None)
  Receive Date: 20120329
  Receipt Date: 20120321
  Transmission Date: 20120608
  Serious: Yes (Other)
  Sender: FDA-Public Use
  Company Number: JP-ASTELLAS-2012JP002549

PATIENT
  Age: 15 Year
  Sex: Male

DRUGS (9)
  1. PROGRAF [Suspect]
     Indication: PROPHYLAXIS AGAINST GRAFT VERSUS HOST DISEASE
     Route: 065
  2. BUSULFAN [Concomitant]
     Indication: BONE MARROW CONDITIONING REGIMEN
     Dosage: UNK
     Route: 065
  3. PREDNISOLONE [Concomitant]
     Indication: PROPHYLAXIS AGAINST GRAFT VERSUS HOST DISEASE
     Dosage: 0.5 MG/KG, UNKNOWN/D
     Route: 065
  4. NELARABINE [Concomitant]
     Dosage: 650 MG/M2, UNKNOWN/D
     Route: 065
  5. ETOPOSIDE [Concomitant]
     Indication: BONE MARROW CONDITIONING REGIMEN
     Dosage: 1800 MG/M2, UNKNOWN/D
     Route: 065
  6. CYCLOPHOSPHAMIDE [Concomitant]
     Indication: BONE MARROW CONDITIONING REGIMEN
     Dosage: 60 MG/M2, UNKNOWN/D
     Route: 065
  7. NELARABINE [Concomitant]
     Dosage: 650 MG/M2, UNKNOWN/D
     Route: 065
  8. CYCLOPHOSPHAMIDE [Concomitant]
     Dosage: 60 MG/KG, UNKNOWN/D
     Route: 065
  9. METHOTREXATE [Concomitant]
     Indication: PROPHYLAXIS AGAINST GRAFT VERSUS HOST DISEASE
     Route: 065

REACTIONS (3)
  - ACUTE GRAFT VERSUS HOST DISEASE [None]
  - CHRONIC GRAFT VERSUS HOST DISEASE [None]
  - DRUG INEFFECTIVE [None]
